FAERS Safety Report 22381685 (Version 1)
Quarter: 2023Q2

REPORT INFORMATION
  Report Type: Spontaneous
  Country: MY (occurrence: MY)
  Receive Date: 20230530
  Receipt Date: 20230530
  Transmission Date: 20230722
  Serious: Yes (Other)
  Sender: FDA-Public Use
  Company Number: MY-IGSA-BIG0023452

PATIENT
  Age: 50 Year
  Sex: Female

DRUGS (1)
  1. ALBUTEIN [Suspect]
     Active Substance: ALBUMIN HUMAN
     Indication: Hypovolaemic shock
     Dosage: 5 GRAM, SINGLE
     Route: 042

REACTIONS (3)
  - Unresponsive to stimuli [Recovered/Resolved]
  - Oxygen saturation decreased [Recovered/Resolved]
  - Blood pressure decreased [Recovered/Resolved]
